FAERS Safety Report 10235553 (Version 2)
Quarter: 2014Q3

REPORT INFORMATION
  Report Type: Spontaneous
  Country: NO (occurrence: None)
  Receive Date: 20140611
  Receipt Date: 20140828
  Transmission Date: 20150326
  Serious: Yes (Disabling)
  Sender: FDA-Public Use
  Company Number: 2375451

PATIENT
  Age: 23 Year
  Sex: Male

DRUGS (18)
  1. CYTARABINE. [Suspect]
     Active Substance: CYTARABINE
     Indication: T-CELL TYPE ACUTE LEUKAEMIA
     Dosage: ACCORDING TO NOPHO-ALL 2000 PROTOCOL
     Route: 042
     Dates: start: 20070615, end: 20071214
  2. TIOGUANINE [Suspect]
     Active Substance: THIOGUANINE ANHYDROUS
     Indication: T-CELL TYPE ACUTE LEUKAEMIA
     Dosage: ACCORDING TO NOPHO-ALL 2000 PROTOCOL
     Route: 048
     Dates: start: 20070613, end: 20080723
  3. PREDNISOLONE. [Suspect]
     Active Substance: PREDNISOLONE
     Indication: T-CELL TYPE ACUTE LEUKAEMIA
     Dates: start: 20070420, end: 20070424
  4. DAUNORUBICIN [Suspect]
     Active Substance: DAUNORUBICIN
     Indication: T-CELL TYPE ACUTE LEUKAEMIA
     Dosage: ACCORDING TO NOPHO-ALL 2000 PROTOCOL
     Route: 042
     Dates: start: 20080616, end: 20080811
  5. HYDROXYCARBAMIDE [Suspect]
     Active Substance: HYDROXYUREA
     Indication: T-CELL TYPE ACUTE LEUKAEMIA
     Dates: start: 20080611, end: 20080614
  6. METHOTREXATE SODIUM. [Suspect]
     Active Substance: METHOTREXATE SODIUM
     Indication: T-CELL TYPE ACUTE LEUKAEMIA
     Dosage: ACCORDING TO NOPHO-ALL 2000 PROTOCOL
  7. VINCRISTINE SULFATE. [Suspect]
     Active Substance: VINCRISTINE SULFATE
     Indication: T-CELL TYPE ACUTE LEUKAEMIA
     Dosage: ACCORDING TO NOPHO-ALL 2000 PROTOCOL
     Route: 042
     Dates: start: 20070425, end: 2009
  8. ASPARAGINASE [Suspect]
     Active Substance: ASPARAGINASE
     Indication: T-CELL TYPE ACUTE LEUKAEMIA
     Dosage: ACCORDING TO NOPHO-ALL 2000 PROTOCOL
     Route: 030
     Dates: start: 20070531, end: 20071031
  9. CYCLOPHOSPHAMIDE. [Suspect]
     Active Substance: CYCLOPHOSPHAMIDE
     Indication: T-CELL TYPE ACUTE LEUKAEMIA
     Dosage: ACCORDING TO NOPHO-ALL 2000 PROTOCOL
     Dates: start: 20070613, end: 20070711
  10. VINCRISTINE SULFATE. [Suspect]
     Active Substance: VINCRISTINE SULFATE
     Indication: T-CELL TYPE ACUTE LEUKAEMIA
     Route: 042
     Dates: start: 20080713, end: 20080713
  11. CARMUSTINE [Suspect]
     Active Substance: CARMUSTINE
     Indication: T-CELL TYPE ACUTE LEUKAEMIA
     Dosage: ACCORDING TO NOPHO-ALL 2000 PROTOCOL
     Dates: start: 20080630, end: 20080825
  12. DEXAMETHASONE. [Suspect]
     Active Substance: DEXAMETHASONE
     Indication: T-CELL TYPE ACUTE LEUKAEMIA
     Dosage: ACCORDING TO NOPHO-ALL 2000 PROTOCOL
     Route: 048
     Dates: start: 20071031, end: 2009
  13. METHOTREXATE SODIUM. [Suspect]
     Active Substance: METHOTREXATE SODIUM
     Indication: PANCYTOPENIA
     Dosage: ACCORDING TO NOPHO-ALL 2000 PROTOCOL
  14. CYTARABINE. [Suspect]
     Active Substance: CYTARABINE
     Indication: T-CELL TYPE ACUTE LEUKAEMIA
     Dosage: ACCORDING TO NOPHO-ALL 2000 PROTOCOL
     Route: 042
     Dates: start: 20070615, end: 20071214
  15. PREDNISOLONE. [Suspect]
     Active Substance: PREDNISOLONE
     Indication: PRODUCT USED FOR UNKNOWN INDICATION
     Dates: start: 20070420, end: 20070424
  16. MERCAPTOPURINE. [Suspect]
     Active Substance: MERCAPTOPURINE
     Indication: PANCYTOPENIA
     Dates: start: 20080924, end: 2009
  17. MERCAPTOPURINE. [Suspect]
     Active Substance: MERCAPTOPURINE
     Indication: T-CELL TYPE ACUTE LEUKAEMIA
     Dates: start: 20080924, end: 2009
  18. DOXORUBICIN HCL [Suspect]
     Active Substance: DOXORUBICIN HYDROCHLORIDE
     Indication: T-CELL TYPE ACUTE LEUKAEMIA
     Dosage: ACCORDING TO NOPHO-ALL 2000 PROTOCOL
     Route: 042
     Dates: start: 20070425, end: 20071114

REACTIONS (2)
  - Osteonecrosis [None]
  - Deafness [None]

NARRATIVE: CASE EVENT DATE: 20120906
